FAERS Safety Report 17691425 (Version 1)
Quarter: 2020Q2

REPORT INFORMATION
  Report Type: Spontaneous
  Country: ES (occurrence: ES)
  Receive Date: 20200422
  Receipt Date: 20200422
  Transmission Date: 20200714
  Serious: Yes (Other)
  Sender: FDA-Public Use
  Company Number: ES-TEVA-2020-ES-1225669

PATIENT
  Age: 33 Year
  Sex: Male

DRUGS (6)
  1. HIDROXICLOROQUINA (2143A) [Suspect]
     Active Substance: HYDROXYCHLOROQUINE
     Indication: PNEUMONIA
     Dosage: 400 MG / 12H THE FIRST DAY, THEN 400 MG / 24H, UNIT DOSE 400MG
     Route: 048
     Dates: start: 20200327, end: 20200331
  2. CEFTRIAXONA (501A) [Suspect]
     Active Substance: CEFTRIAXONE
     Indication: PNEUMONIA
     Dosage: 2GR/24H, UNIT DOSE 2 GM
     Route: 042
     Dates: start: 20200327, end: 20200330
  3. AZITROMICINA (7019A) [Suspect]
     Active Substance: AZITHROMYCIN
     Indication: PNEUMONIA
     Dosage: 500MG / 24H 1ST DOSE, THEN 250MG / 24H, UNIT DOES 500 MG
     Route: 048
     Dates: start: 20200326, end: 20200326
  4. AZITROMICINA (7019A) [Suspect]
     Active Substance: AZITHROMYCIN
     Indication: CORONAVIRUS INFECTION
     Dosage: 500MG / 24H 1ST DOSE, THEN 250MG / 24H, UNIT DOSE 250 MG
     Route: 048
     Dates: start: 20200327, end: 20200329
  5. HIDROXICLOROQUINA (2143A) [Suspect]
     Active Substance: HYDROXYCHLOROQUINE
     Indication: CORONAVIRUS INFECTION
     Dosage: 400 MG / 12H THE FIRST DAY, THEN 400 MG / 24H, UNIT DOSE 400 MG
     Route: 048
     Dates: start: 20200326, end: 20200326
  6. CEFTRIAXONA (501A) [Suspect]
     Active Substance: CEFTRIAXONE
     Indication: CORONAVIRUS INFECTION

REACTIONS (1)
  - Hepatitis [Unknown]

NARRATIVE: CASE EVENT DATE: 20200330
